FAERS Safety Report 13691260 (Version 1)
Quarter: 2017Q2

REPORT INFORMATION
  Report Type: Spontaneous
  Country: US (occurrence: US)
  Receive Date: 20170626
  Receipt Date: 20170626
  Transmission Date: 20170830
  Serious: No
  Sender: FDA-Public Use
  Company Number: US-ROCHE-660015

PATIENT
  Age: 41 Year
  Sex: Female

DRUGS (14)
  1. MYCOPHENOLATE MOFETIL. [Suspect]
     Active Substance: MYCOPHENOLATE MOFETIL
     Dosage: STOPPED FOR A WEEK AND RE-STARTED
     Route: 048
  2. BUTCHER^S BROOM [Concomitant]
     Active Substance: RUSCUS ACULEATUS ROOT
     Dosage: HERBS FOR VEINS
     Route: 065
  3. VALTREX [Concomitant]
     Active Substance: VALACYCLOVIR HYDROCHLORIDE
     Route: 065
  4. JUICE PLUS+ [Concomitant]
     Dosage: DRUG NAME: JUICE PLUS
     Route: 065
  5. DIOSMIN [Concomitant]
     Active Substance: DIOSMIN
     Route: 065
  6. MYCOPHENOLATE MOFETIL. [Suspect]
     Active Substance: MYCOPHENOLATE MOFETIL
     Dosage: DOSE CUT
     Route: 048
  7. PLAQUENIL [Concomitant]
     Active Substance: HYDROXYCHLOROQUINE SULFATE
     Dosage: DRUG NAME: PLAQUINIL
     Route: 065
  8. MINOCYCLINE [Concomitant]
     Active Substance: MINOCYCLINE\MINOCYCLINE HYDROCHLORIDE
     Route: 065
  9. CALCIUM [Concomitant]
     Active Substance: CALCIUM
     Route: 065
  10. AMINO ACIDS [Concomitant]
     Active Substance: AMINO ACIDS
     Route: 065
  11. MULTIVITAMIN [Concomitant]
     Active Substance: VITAMINS
     Dosage: DRUG REPORTED AS: VITAMINS MULTI
     Route: 065
  12. HORSE-CHESTNUT [Concomitant]
     Dosage: HERBS FOR VEINS
     Route: 065
  13. MYCOPHENOLATE MOFETIL. [Suspect]
     Active Substance: MYCOPHENOLATE MOFETIL
     Indication: NODULAR VASCULITIS
     Route: 048
  14. RESVERATROL [Concomitant]
     Active Substance: DIETARY SUPPLEMENT\RESVERATROL
     Dosage: DRUG NAME REPORTED AS RISVERTROL
     Route: 065

REACTIONS (5)
  - Arthralgia [Unknown]
  - Neuropathy peripheral [Unknown]
  - Pain [Unknown]
  - Myalgia [Unknown]
  - Pyrexia [Unknown]

NARRATIVE: CASE EVENT DATE: 20090814
